FAERS Safety Report 10269637 (Version 3)
Quarter: 2014Q3

REPORT INFORMATION
  Report Type: Spontaneous
  Country: US (occurrence: None)
  Receive Date: 20140612
  Receipt Date: 20140730
  Transmission Date: 20150326
  Serious: Yes (Life-Threatening, Hospitalization)
  Sender: FDA-Public Use
  Company Number: 003-183

PATIENT
  Age: 53 Year
  Sex: Female

DRUGS (7)
  1. CROFAB [Suspect]
     Active Substance: CROTALIDAE POLYVALENT IMMUNE FAB (OVINE)
     Indication: SNAKE BITE
     Dosage: 4 VIALS TOTAL
     Dates: start: 20140527, end: 20140527
  2. MAGNESIUM [Concomitant]
     Active Substance: MAGNESIUM
  3. HYDROCHLOROTHIAZIDE. [Concomitant]
     Active Substance: HYDROCHLOROTHIAZIDE
  4. LIPITOR [Concomitant]
     Active Substance: ATORVASTATIN CALCIUM
  5. VITAMINS [Concomitant]
     Active Substance: VITAMINS
  6. UNKNOWN CHEMOTHERAPY TREATMENT [Concomitant]
  7. TAXOL [Concomitant]
     Active Substance: PACLITAXEL

REACTIONS (4)
  - Anaphylactic reaction [None]
  - Rash [None]
  - Blood pressure decreased [None]
  - Loss of consciousness [None]

NARRATIVE: CASE EVENT DATE: 20140527
